FAERS Safety Report 24031272 (Version 2)
Quarter: 2024Q3

REPORT INFORMATION
  Report Type: Spontaneous
  Country: JP (occurrence: JP)
  Receive Date: 20240629
  Receipt Date: 20240806
  Transmission Date: 20241016
  Serious: Yes (Other)
  Sender: ABBVIE
  Company Number: JP-ABBVIE-5799518

PATIENT
  Age: 21 Year
  Sex: Male
  Weight: 38 kg

DRUGS (6)
  1. HUMIRA [Suspect]
     Active Substance: ADALIMUMAB
     Indication: Hidradenitis
     Dosage: FORM STRENGTH: 80 MILLIGRAM
     Route: 058
     Dates: start: 20210513, end: 202405
  2. HERBALS [Concomitant]
     Active Substance: HERBALS
     Indication: Product used for unknown indication
     Dosage: 2.5 GRAM,?HERBAL MEDICINE
     Route: 048
  3. CLOSTRIDIUM BUTYRICUM SPORES STRAIN M-55 [Concomitant]
     Active Substance: CLOSTRIDIUM BUTYRICUM SPORES STRAIN M-55
     Indication: Product used for unknown indication
     Dosage: TIME INTERVAL: 0.33333333 DAYS: 3 GRAM
     Route: 048
     Dates: start: 2004
  4. MAGNESIUM OXIDE [Concomitant]
     Active Substance: MAGNESIUM OXIDE
     Indication: Product used for unknown indication
     Dosage: TIME INTERVAL: 0.33333333 DAYS: 750 MILLIGRAM
     Route: 048
  5. DASATINIB [Concomitant]
     Active Substance: DASATINIB
     Indication: Chronic myeloid leukaemia
     Dosage: 50 MILLIGRAM
     Route: 048
     Dates: start: 20240531, end: 20240719
  6. DASATINIB [Concomitant]
     Active Substance: DASATINIB
     Indication: Chronic myeloid leukaemia
     Dosage: 50 MILLIGRAM
     Route: 048
     Dates: start: 20240727

REACTIONS (1)
  - Chronic myeloid leukaemia [Unknown]

NARRATIVE: CASE EVENT DATE: 20240517
